FAERS Safety Report 19014281 (Version 2)
Quarter: 2021Q1

REPORT INFORMATION
  Report Type: Spontaneous
  Country: GB (occurrence: GB)
  Receive Date: 20210316
  Receipt Date: 20210322
  Transmission Date: 20210420
  Serious: Yes (Other)
  Sender: FDA-Public Use
  Company Number: GB-JNJFOC-20210313903

PATIENT
  Age: 40 Year
  Sex: Male

DRUGS (4)
  1. STELARA [Suspect]
     Active Substance: USTEKINUMAB
     Indication: PSORIASIS
     Route: 058
     Dates: start: 2010
  2. STELARA [Suspect]
     Active Substance: USTEKINUMAB
     Route: 058
     Dates: start: 2012
  3. ALCOHOL. [Suspect]
     Active Substance: ALCOHOL
  4. STELARA [Suspect]
     Active Substance: USTEKINUMAB
     Dosage: SWITCHED BACK TO 12 WEEKLY 6 MONTHS AGO
     Route: 058

REACTIONS (5)
  - Oesophageal varices haemorrhage [Unknown]
  - Arthritis [Unknown]
  - Joint stiffness [Unknown]
  - Therapeutic product effect incomplete [Unknown]
  - Psoriasis [Not Recovered/Not Resolved]

NARRATIVE: CASE EVENT DATE: 2014
